FAERS Safety Report 6119062-9 (Version None)
Quarter: 2009Q1

REPORT INFORMATION
  Report Type: 
  Country: None (occurrence: None)
  Receive Date: 20090316
  Receipt Date: 20090305
  Transmission Date: 20090719
  Serious: Yes (Hospitalization)
  Sender: FDA-Public Use
  Company Number: US-AMGEN-US336985

PATIENT
  Sex: Male

DRUGS (5)
  1. NPLATE [Suspect]
     Indication: AUTOIMMUNE DISORDER
     Dates: start: 20090228
  2. PLATELETS [Concomitant]
  3. BLOOD, WHOLE [Concomitant]
  4. PREDNISONE [Concomitant]
  5. FLOMAX [Concomitant]

REACTIONS (7)
  - BONE MARROW FAILURE [None]
  - DRUG INEFFECTIVE [None]
  - IDIOPATHIC THROMBOCYTOPENIC PURPURA [None]
  - INFECTION [None]
  - PLATELET COUNT DECREASED [None]
  - PLEURAL EFFUSION [None]
  - WEIGHT INCREASED [None]
